FAERS Safety Report 5572325-8 (Version None)
Quarter: 2007Q4

REPORT INFORMATION
  Report Type: 
  Country: None (occurrence: None)
  Receive Date: 20071219
  Receipt Date: 20071211
  Transmission Date: 20080405
  Serious: Yes (Other)
  Sender: FDA-Public Use
  Company Number: 07122352

PATIENT
  Age: 5 Month
  Sex: Male

DRUGS (1)
  1. CLOBETASOL PROPIONATE [Suspect]
     Indication: DIFFUSE CUTANEOUS MASTOCYTOSIS
     Dosage: TOPICAL
     Route: 061

REACTIONS (1)
  - XANTHOMA [None]
